FAERS Safety Report 13246172 (Version 1)
Quarter: 2017Q1

REPORT INFORMATION
  Report Type: Report from Study
  Country: US (occurrence: US)
  Receive Date: 20170217
  Receipt Date: 20170217
  Transmission Date: 20170428
  Serious: Yes (Hospitalization)
  Sender: FDA-Public Use
  Company Number: US-ROCHE-1739309

PATIENT
  Age: 56 Year
  Sex: Female
  Weight: 52.3 kg

DRUGS (9)
  1. ATEZOLIZUMAB [Suspect]
     Active Substance: ATEZOLIZUMAB
     Indication: NON-SMALL CELL LUNG CANCER STAGE IV
     Dosage: MOST RECENT DOSE PRIOR TO EVENT: 16/MAR/2016
     Route: 042
     Dates: start: 20160113
  2. BETAMETHASONE/CLOTRIMAZOLE [Concomitant]
     Active Substance: BETAMETHASONE DIPROPIONATE\CLOTRIMAZOLE
     Indication: SKIN ULCER
     Route: 065
     Dates: start: 20160321
  3. CARBOPLATIN. [Suspect]
     Active Substance: CARBOPLATIN
     Indication: NON-SMALL CELL LUNG CANCER STAGE IV
     Dosage: MOST RECENT DOSE PRIOR TO EVENT: 16/MAR/2016 AT 450 MG?AREA UNDER THE CONCENTRATION CURVE (AUC) 6 ON
     Route: 042
     Dates: start: 20160113
  4. PACLITAXEL. [Suspect]
     Active Substance: PACLITAXEL
     Indication: NON-SMALL CELL LUNG CANCER STAGE IV
     Dosage: MOST RECENT DOSE PRIOR TO EVENT: 16/MAR/2016 AT 280 MG
     Route: 042
     Dates: start: 20160113
  5. ALPRAZOLAM. [Concomitant]
     Active Substance: ALPRAZOLAM
     Indication: ANXIETY
     Route: 065
     Dates: start: 20160219
  6. ALBUTEROL SULFATE. [Concomitant]
     Active Substance: ALBUTEROL SULFATE
     Indication: PNEUMONITIS
     Route: 065
     Dates: start: 20160406
  7. OXYCODONE [Concomitant]
     Active Substance: OXYCODONE
     Indication: PAIN
     Route: 065
     Dates: start: 20151109
  8. KEFLEX [Concomitant]
     Active Substance: CEPHALEXIN
     Indication: SKIN ULCER
     Route: 065
     Dates: start: 20160331
  9. BEVACIZUMAB [Suspect]
     Active Substance: BEVACIZUMAB
     Indication: NON-SMALL CELL LUNG CANCER STAGE IV
     Dosage: MOST RECENT DOSE PRIOR TO EVENT: 16/MAR/2016 AT 780 MG
     Route: 042
     Dates: start: 20160113

REACTIONS (1)
  - Bronchial secretion retention [Recovered/Resolved]

NARRATIVE: CASE EVENT DATE: 20160404
